FAERS Safety Report 8023285-1 (Version None)
Quarter: 2012Q1

REPORT INFORMATION
  Report Type: 
  Country: None (occurrence: None)
  Receive Date: 20120104
  Receipt Date: 20111228
  Transmission Date: 20120608
  Serious: Yes (Death)
  Sender: FDA-Public Use
  Company Number: US-PFIZER INC-US-WYE-H02028808

PATIENT
  Age: 52 Year
  Sex: Male

DRUGS (7)
  1. WARFARIN [Suspect]
     Dosage: UNK
     Route: 048
     Dates: start: 20060101, end: 20060101
  2. ACETAMINOPHEN [Suspect]
     Dosage: UNK
     Route: 048
     Dates: start: 20060101, end: 20060101
  3. PROPAFENONE [Suspect]
     Dosage: UNK
     Route: 048
     Dates: start: 20060101, end: 20060101
  4. CARVEDILOL [Suspect]
     Dosage: UNK
     Route: 048
     Dates: start: 20060101, end: 20060101
  5. OXAZEPAM [Suspect]
     Dosage: UNK
     Route: 048
     Dates: start: 20060101, end: 20060101
  6. IBUPROFEN [Suspect]
     Dosage: UNK
     Route: 048
     Dates: start: 20060101, end: 20060101
  7. TEMAZEPAM [Suspect]
     Dosage: UNK
     Route: 048
     Dates: start: 20060101, end: 20060101

REACTIONS (1)
  - INTENTIONAL OVERDOSE [None]
